FAERS Safety Report 10223187 (Version 1)
Quarter: 2014Q2

REPORT INFORMATION
  Report Type: Spontaneous
  Country: US (occurrence: None)
  Receive Date: 20140605
  Receipt Date: 20140605
  Transmission Date: 20141212
  Serious: Yes (Hospitalization)
  Sender: FDA-Public Use
  Company Number: UNT-2014-001150

PATIENT
  Age: 62 Year
  Sex: Female

DRUGS (1)
  1. REMODULIN (TREPROSTINIL SODIUM) INJECTION, 2.5MG/ML [Suspect]
     Indication: COR PULMONALE CHRONIC
     Route: 042
     Dates: start: 20131028

REACTIONS (6)
  - Dyspnoea [None]
  - Platelet count decreased [None]
  - Blood glucose increased [None]
  - Blood pressure increased [None]
  - Device related infection [None]
  - Asthenia [None]
